FAERS Safety Report 9044160 (Version 1)
Quarter: 2013Q1

REPORT INFORMATION
  Report Type: Report from Study
  Country: US (occurrence: US)
  Receive Date: 20130130
  Receipt Date: 20130130
  Transmission Date: 20140127
  Serious: Yes (Other)
  Sender: FDA-Public Use
  Company Number: US-ABBOTT-12P-163-0953167-00

PATIENT
  Sex: Female
  Weight: 85.81 kg

DRUGS (16)
  1. HUMIRA 40 MG/0.8 ML PEN [Suspect]
     Indication: RHEUMATOID ARTHRITIS
     Route: 058
     Dates: start: 2007, end: 201202
  2. SYNTHROID [Concomitant]
     Indication: HYPOTHYROIDISM
  3. METFORMIN [Concomitant]
     Indication: DIABETES MELLITUS
  4. OXYBUTIN [Concomitant]
     Indication: URINARY INCONTINENCE
  5. LISINOPRIL [Concomitant]
     Indication: HYPERTENSION
  6. GENERIC PREVACID OTC [Concomitant]
     Indication: GASTROOESOPHAGEAL REFLUX DISEASE
     Dosage: DAILY
  7. MAXALT [Concomitant]
     Indication: MIGRAINE
  8. BENADRYL [Concomitant]
     Indication: SEASONAL ALLERGY
  9. SYMBICORT [Concomitant]
     Indication: ASTHMA
  10. ORAL DRY MOUTH [Concomitant]
     Indication: SJOGREN^S SYNDROME
  11. OTC VISINE [Concomitant]
     Indication: SJOGREN^S SYNDROME
  12. IBUPROFEN [Concomitant]
     Indication: PAIN
  13. BABY ASPIRIN [Concomitant]
     Indication: PROPHYLAXIS
  14. CALCIUM [Concomitant]
     Indication: PROPHYLAXIS
  15. MULTIVITAMIN [Concomitant]
     Indication: PROPHYLAXIS
  16. OMEGA 3 [Concomitant]
     Indication: PROPHYLAXIS

REACTIONS (4)
  - Breast cancer metastatic [Not Recovered/Not Resolved]
  - Hepatic enzyme increased [Not Recovered/Not Resolved]
  - Ultrasound liver abnormal [Not Recovered/Not Resolved]
  - Tumour marker increased [Not Recovered/Not Resolved]
